FAERS Safety Report 9009001 (Version 1)
Quarter: 2013Q1

REPORT INFORMATION
  Report Type: Spontaneous
  Country: IT (occurrence: IT)
  Receive Date: 20130111
  Receipt Date: 20130111
  Transmission Date: 20140127
  Serious: Yes (Other)
  Sender: FDA-Public Use
  Company Number: IT-JNJFOC-20130102483

PATIENT
  Age: 48 Year
  Sex: Female

DRUGS (2)
  1. REMICADE [Suspect]
     Indication: RHEUMATOID ARTHRITIS
     Dosage: 5M/KG CYCLIC
     Route: 042
     Dates: start: 20050701, end: 20121201
  2. METHOTREXATE [Concomitant]
     Dosage: 5 MG WEEKLY
     Route: 048

REACTIONS (1)
  - Breast cancer [Unknown]
